FAERS Safety Report 14667195 (Version 1)
Quarter: 2018Q1

REPORT INFORMATION
  Report Type: Spontaneous
  Country: US (occurrence: US)
  Receive Date: 20180322
  Receipt Date: 20180322
  Transmission Date: 20180509
  Serious: Yes (Hospitalization, Other)
  Sender: FDA-Public Use
  Company Number: US-VISTAPHARM, INC.-VER201803-000468

PATIENT
  Age: 51 Year
  Sex: Female

DRUGS (3)
  1. HYDROCODONE AND ACETAMINOPHEN [Suspect]
     Active Substance: ACETAMINOPHEN\HYDROCODONE
     Indication: PRODUCT USED FOR UNKNOWN INDICATION
  2. CLONAZEPAM. [Suspect]
     Active Substance: CLONAZEPAM
     Indication: PRODUCT USED FOR UNKNOWN INDICATION
  3. ZOLPIDEM [Suspect]
     Active Substance: ZOLPIDEM\ZOLPIDEM TARTRATE
     Indication: PRODUCT USED FOR UNKNOWN INDICATION

REACTIONS (13)
  - Coma [Unknown]
  - Disturbance in attention [Unknown]
  - Cognitive disorder [Unknown]
  - Muscle rigidity [Unknown]
  - Hashimoto^s encephalopathy [Unknown]
  - Parkinsonism [Unknown]
  - Bradykinesia [Unknown]
  - Leukoencephalopathy [Unknown]
  - Suicide attempt [Unknown]
  - Aphasia [Unknown]
  - Movement disorder [Unknown]
  - Gait disturbance [Unknown]
  - Parkinsonian gait [Unknown]
